FAERS Safety Report 5712735-9 (Version None)
Quarter: 2008Q2

REPORT INFORMATION
  Report Type: 
  Country: None (occurrence: None)
  Receive Date: 20080422
  Receipt Date: 20080411
  Transmission Date: 20081010
  Serious: Yes (Other)
  Sender: FDA-Public Use
  Company Number: DE-ROCHE-544393

PATIENT
  Sex: Female

DRUGS (4)
  1. BONIVA [Suspect]
     Route: 042
     Dates: start: 20080121
  2. D3-VICOTRAT [Concomitant]
     Route: 030
     Dates: start: 20080122
  3. ZYTRAM [Concomitant]
     Dosage: DRUG: ZYTRIM 50
     Route: 048
     Dates: start: 20080101
  4. IMUREK [Concomitant]
     Route: 048
     Dates: start: 20070417, end: 20071201

REACTIONS (2)
  - ANGIOEDEMA [None]
  - OEDEMA [None]
